FAERS Safety Report 9664258 (Version 1)
Quarter: 2013Q4

REPORT INFORMATION
  Report Type: Spontaneous
  Country: GB (occurrence: GB)
  Receive Date: 20131101
  Receipt Date: 20131101
  Transmission Date: 20140711
  Serious: Yes (Other)
  Sender: FDA-Public Use
  Company Number: GB-WATSON-2013-19897

PATIENT
  Age: 61 Year
  Sex: Female
  Weight: 55 kg

DRUGS (1)
  1. NAPROXEN (UNKNOWN) [Suspect]
     Indication: ARTHRITIS
     Dosage: 250-500MG TWICE A DAY (DIDN^T TAKE MORE THAN 375 MG AT ONCE)
     Route: 048
     Dates: start: 20130920, end: 20131002

REACTIONS (3)
  - Ocular hyperaemia [Recovering/Resolving]
  - Alopecia [Recovering/Resolving]
  - Eye swelling [Recovering/Resolving]
